FAERS Safety Report 11076525 (Version 2)
Quarter: 2015Q4

REPORT INFORMATION
  Report Type: Spontaneous
  Country: US (occurrence: US)
  Receive Date: 20150429
  Receipt Date: 20151209
  Transmission Date: 20160304
  Serious: No
  Sender: FDA-Public Use
  Company Number: US-GLAXOSMITHKLINE-US2015054883

PATIENT
  Age: 55 Year
  Sex: Female

DRUGS (1)
  1. NICORETTE MINT [Suspect]
     Active Substance: NICOTINE
     Indication: SMOKING CESSATION THERAPY
     Dosage: 2 MG, UNK

REACTIONS (5)
  - Stomatitis [Not Recovered/Not Resolved]
  - Nicotine dependence [Not Recovered/Not Resolved]
  - Dysgeusia [Not Recovered/Not Resolved]
  - Mouth ulceration [Not Recovered/Not Resolved]
  - Product quality issue [Unknown]
